FAERS Safety Report 10484115 (Version 1)
Quarter: 2014Q3

REPORT INFORMATION
  Report Type: Spontaneous
  Country: US (occurrence: US)
  Receive Date: 20140930
  Receipt Date: 20140930
  Transmission Date: 20150326
  Serious: No
  Sender: FDA-Public Use
  Company Number: US-PFIZER INC-2014265651

PATIENT
  Sex: Male

DRUGS (2)
  1. LYRICA [Suspect]
     Active Substance: PREGABALIN
     Indication: NEURALGIA
     Dosage: 2- 200 MG EVERY 4-6 HOURS
  2. LYRICA [Suspect]
     Active Substance: PREGABALIN
     Indication: DRUG WITHDRAWAL SYNDROME

REACTIONS (5)
  - Weight increased [Unknown]
  - Feeling abnormal [Unknown]
  - Intentional product misuse [Unknown]
  - Mood altered [Unknown]
  - Abnormal behaviour [Unknown]
